FAERS Safety Report 10070286 (Version 2)
Quarter: 2014Q2

REPORT INFORMATION
  Report Type: Spontaneous
  Country: DE (occurrence: DE)
  Receive Date: 20140410
  Receipt Date: 20140410
  Transmission Date: 20141212
  Serious: Yes (Other)
  Sender: FDA-Public Use
  Company Number: DE-BRISTOL-MYERS SQUIBB COMPANY-19951433

PATIENT
  Age: 80 Year
  Sex: Male
  Weight: 70 kg

DRUGS (3)
  1. ELIQUIS [Suspect]
     Indication: ATRIAL FIBRILLATION
     Route: 048
     Dates: start: 20131002, end: 20131105
  2. ALVESCO [Concomitant]
     Indication: ASTHMA
     Route: 055
  3. LYRICA [Concomitant]
     Indication: TRIGEMINAL NEURALGIA
     Dosage: 1DF:25 UNIT NOS
     Route: 048

REACTIONS (2)
  - Blood glucose abnormal [Recovered/Resolved]
  - Epistaxis [Recovered/Resolved]
